FAERS Safety Report 6618070-9 (Version None)
Quarter: 2010Q1

REPORT INFORMATION
  Report Type: 
  Country: None (occurrence: None)
  Receive Date: 20100308
  Receipt Date: 20100224
  Transmission Date: 20100710
  Serious: Yes (Hospitalization, Other)
  Sender: FDA-Public Use
  Company Number: IT-ROCHE-450133

PATIENT
  Sex: Male
  Weight: 91 kg

DRUGS (9)
  1. METHOXY POLYETHYLENE GLYCOL-EPOETIN BETA [Suspect]
     Route: 058
     Dates: start: 20051112
  2. METHOXY POLYETHYLENE GLYCOL-EPOETIN BETA [Suspect]
     Route: 058
  3. INSULIN [Suspect]
     Dosage: HE HAD TAKEN A LARGE, UNKNOWN DOSE OF INSULIN.
     Route: 065
     Dates: start: 19990101
  4. BENZODIAZEPINE [Suspect]
     Route: 065
  5. NITROGLYCERIN [Concomitant]
     Dates: start: 19950101
  6. CARBONATE CALCIUM [Concomitant]
     Dates: start: 20010101
  7. OMEPRAZOLE [Concomitant]
     Dates: start: 20050525
  8. ISOSORBIDE MONONITRATE [Concomitant]
     Dates: start: 20050525
  9. EPARINA [Concomitant]
     Dosage: DRUG NAME REPORTED AS EPARIN.
     Dates: start: 20051012

REACTIONS (3)
  - HYPOGLYCAEMIA [None]
  - HYPOGLYCAEMIC COMA [None]
  - OVERDOSE [None]
